FAERS Safety Report 6404168-7 (Version None)
Quarter: 2009Q4

REPORT INFORMATION
  Report Type: 
  Country: None (occurrence: None)
  Receive Date: 20091013
  Receipt Date: 20091002
  Transmission Date: 20100525
  Serious: Yes (Disabling, Other)
  Sender: FDA-Public Use
  Company Number: 2009010579

PATIENT
  Age: 45 Year
  Sex: Male
  Weight: 82 kg

DRUGS (2)
  1. MODAFINIL [Suspect]
     Indication: NARCOLEPSY
     Dosage: 4 DOSAGE FORMS (1 DOSAGE FORMS, 4 IN 1 D), ORAL
     Route: 048
     Dates: start: 20090918
  2. LOPERAMIDE (LOPERAMIDE) [Concomitant]

REACTIONS (10)
  - AGGRESSION [None]
  - DIARRHOEA [None]
  - DISEASE RECURRENCE [None]
  - FATIGUE [None]
  - IRRITABILITY [None]
  - JAW DISORDER [None]
  - NARCOLEPSY [None]
  - PARALYSIS [None]
  - SUICIDAL IDEATION [None]
  - WAXY FLEXIBILITY [None]
